FAERS Safety Report 24641623 (Version 1)
Quarter: 2024Q4

REPORT INFORMATION
  Report Type: Spontaneous
  Country: PR (occurrence: PR)
  Receive Date: 20241120
  Receipt Date: 20241120
  Transmission Date: 20250114
  Serious: Yes (Other)
  Sender: MYLAN
  Company Number: PR-MYLANLABS-2024M1102908

PATIENT
  Age: 4 Month
  Sex: Male

DRUGS (3)
  1. TRIAMCINOLONE [Suspect]
     Active Substance: TRIAMCINOLONE
     Indication: Langerhans^ cell histiocytosis
     Dosage: UNK
     Route: 061
  2. TACROLIMUS [Suspect]
     Active Substance: TACROLIMUS
     Indication: Langerhans^ cell histiocytosis
     Dosage: UNK
     Route: 061
  3. IMIQUIMOD [Suspect]
     Active Substance: IMIQUIMOD
     Indication: Langerhans^ cell histiocytosis
     Dosage: UNK, QD, TREATMENT CONTINUED AFTER ADR AND LATER DISCONTINUED
     Route: 061

REACTIONS (2)
  - Drug ineffective [Unknown]
  - Skin irritation [Unknown]
